FAERS Safety Report 5138942-4 (Version None)
Quarter: 2006Q4

REPORT INFORMATION
  Report Type: 
  Country: None (occurrence: None)
  Receive Date: 20061030
  Receipt Date: 20060518
  Transmission Date: 20070319
  Serious: No
  Sender: FDA-Public Use
  Company Number: US-GLAXOSMITHKLINE-A0606217A

PATIENT
  Age: 51 Year
  Sex: Female

DRUGS (4)
  1. ADVAIR HFA [Suspect]
     Indication: ASTHMA
     Route: 055
     Dates: start: 20050501
  2. NASACORT [Concomitant]
  3. ALLEGRA [Concomitant]
  4. ALBUTEROL [Concomitant]

REACTIONS (2)
  - DYSPHONIA [None]
  - ORAL CANDIDIASIS [None]
